FAERS Safety Report 7571192-0 (Version None)
Quarter: 2011Q2

REPORT INFORMATION
  Report Type: 
  Country: None (occurrence: None)
  Receive Date: 20110624
  Receipt Date: 20110614
  Transmission Date: 20111010
  Serious: Yes (Hospitalization, Disabling, Other)
  Sender: FDA-Public Use
  Company Number: US-ELI_LILLY_AND_COMPANY-US201106004567

PATIENT
  Sex: Female

DRUGS (3)
  1. HUMULIN N [Suspect]
     Dosage: 5 U, EACH EVENING
  2. HUMALOG [Suspect]
     Dosage: UNK, UNKNOWN
  3. HUMULIN N [Suspect]
     Indication: TYPE 2 DIABETES MELLITUS
     Dosage: 10 U, EACH MORNING

REACTIONS (10)
  - BLOOD GLUCOSE INCREASED [None]
  - NODULE [None]
  - PERSONALITY CHANGE [None]
  - DUPUYTREN'S CONTRACTURE [None]
  - DISABILITY [None]
  - POST PROCEDURAL COMPLICATION [None]
  - MOBILITY DECREASED [None]
  - DRUG INEFFECTIVE [None]
  - ABNORMAL BEHAVIOUR [None]
  - INTENTIONAL SELF-INJURY [None]
